FAERS Safety Report 23056409 (Version 4)
Quarter: 2024Q1

REPORT INFORMATION
  Report Type: Spontaneous
  Country: JP (occurrence: JP)
  Receive Date: 20231011
  Receipt Date: 20240328
  Transmission Date: 20240410
  Serious: Yes (Other)
  Sender: FDA-Public Use
  Company Number: JP-MSD-2310JPN000882J

PATIENT
  Age: 56 Year
  Sex: Female

DRUGS (3)
  1. NOXAFIL [Suspect]
     Active Substance: POSACONAZOLE
     Indication: Antifungal prophylaxis
     Dosage: 300 MILLIGRAM
     Route: 048
     Dates: end: 202206
  2. NOXAFIL [Suspect]
     Active Substance: POSACONAZOLE
     Dosage: 300 MILLIGRAM
     Route: 041
     Dates: start: 20220622, end: 20220726
  3. NOXAFIL [Suspect]
     Active Substance: POSACONAZOLE
     Dosage: UNK
     Route: 041
     Dates: start: 20220813, end: 2022

REACTIONS (5)
  - Systemic mycosis [Recovering/Resolving]
  - Renal impairment [Unknown]
  - Graft versus host disease in liver [Unknown]
  - Drug level decreased [Unknown]
  - Hepatobiliary disease [Unknown]

NARRATIVE: CASE EVENT DATE: 20220101
